FAERS Safety Report 4539211-3 (Version None)
Quarter: 2004Q4

REPORT INFORMATION
  Report Type: 
  Country: None (occurrence: None)
  Receive Date: 20041222
  Receipt Date: 20041209
  Transmission Date: 20050328
  Serious: Yes (Life-Threatening)
  Sender: FDA-Public Use
  Company Number: 2004110160

PATIENT
  Age: 67 Year
  Sex: Male

DRUGS (6)
  1. AMPICILLIN/SULBACTAM (SULBACTAM, AMPICILLIN) [Suspect]
     Indication: DYSPNOEA
     Dosage: 4.5 GRAM (UNK, 3 IN 1 D) INTRAVENOUS
     Dates: start: 20041201
  2. AMPICILLIN/SULBACTAM (SULBACTAM, AMPICILLIN) [Suspect]
     Indication: PRODUCTIVE COUGH
     Dosage: 4.5 GRAM (UNK, 3 IN 1 D) INTRAVENOUS
     Dates: start: 20041201
  3. AMPICILLIN/SULBACTAM (SULBACTAM, AMPICILLIN) [Suspect]
     Indication: PYREXIA
     Dosage: 4.5 GRAM (UNK, 3 IN 1 D) INTRAVENOUS
     Dates: start: 20041201
  4. PREDNISONE [Concomitant]
  5. THEOPHYLLINE [Concomitant]
  6. OXYGEN [Concomitant]

REACTIONS (2)
  - ANAPHYLACTIC REACTION [None]
  - DYSPNOEA EXACERBATED [None]
